FAERS Safety Report 15877061 (Version 1)
Quarter: 2019Q1

REPORT INFORMATION
  Report Type: Report from Study
  Country: IL (occurrence: IL)
  Receive Date: 20190128
  Receipt Date: 20190128
  Transmission Date: 20190417
  Serious: Yes (Hospitalization)
  Sender: FDA-Public Use
  Company Number: IL-SAKK-2019SA017065AA

PATIENT
  Age: 57 Year
  Sex: Male

DRUGS (1)
  1. INSULIN GLARGINE [Suspect]
     Active Substance: INSULIN GLARGINE
     Dosage: 40 (UNIT UNKNOWN), QD
     Route: 058
     Dates: start: 20180819

REACTIONS (1)
  - Localised infection [Not Recovered/Not Resolved]
